FAERS Safety Report 5749696-2 (Version None)
Quarter: 2008Q2

REPORT INFORMATION
  Report Type: 
  Country: None (occurrence: None)
  Receive Date: 20080527
  Receipt Date: 20080521
  Transmission Date: 20081010
  Serious: Yes (Death, Congenital Anomaly, Other)
  Sender: FDA-Public Use
  Company Number: JP-ASTRAZENECA-2008AC01308

PATIENT
  Sex: Female

DRUGS (4)
  1. CANDESARTAN CILEXETIL [Suspect]
     Dosage: MOTHER TOOK 4 MG DAILY
     Route: 064
  2. FUROSEMIDE [Concomitant]
     Route: 064
  3. FUROSEMIDE [Concomitant]
     Route: 064
  4. NIFEDIPINE [Concomitant]
     Route: 064

REACTIONS (5)
  - DEFORMITY THORAX [None]
  - OLIGOHYDRAMNIOS [None]
  - PREMATURE BABY [None]
  - PULMONARY HYPOPLASIA [None]
  - RENAL IMPAIRMENT [None]
